FAERS Safety Report 5877637-6 (Version None)
Quarter: 2008Q3

REPORT INFORMATION
  Report Type: 
  Country: None (occurrence: None)
  Receive Date: 20080911
  Receipt Date: 20080908
  Transmission Date: 20090109
  Serious: Yes (Other)
  Sender: FDA-Public Use
  Company Number: US-BRISTOL-MYERS SQUIBB COMPANY-14072094

PATIENT
  Age: 1 Day
  Sex: Male
  Weight: 4 kg

DRUGS (7)
  1. ATAZANAVIR [Suspect]
     Route: 064
     Dates: start: 20061121
  2. NORVIR [Suspect]
     Route: 064
     Dates: start: 20061121
  3. TRUVADA [Suspect]
     Route: 064
     Dates: start: 20061121
  4. RETROVIR [Suspect]
     Dosage: COURSE 2-1MG/KG/HR FRM 08MAR'07-08MAR'07.
     Route: 064
     Dates: start: 20070308, end: 20070308
  5. SEROQUEL [Suspect]
     Dosage: PRIOR TO AND UNTIL THE 3RD TRIMESTER
     Route: 064
  6. METHADONE HCL [Suspect]
     Dosage: PRIOR TO AND UNTIL THE 3RD TRIMESTER
     Route: 064
  7. HYDROXYZINE [Concomitant]
     Dosage: PRIOR TO AND UNTIL THE SECOND TRIMESTER
     Route: 064

REACTIONS (11)
  - ATRIAL SEPTAL DEFECT [None]
  - DRUG WITHDRAWAL SYNDROME [None]
  - LEFT VENTRICULAR DYSFUNCTION [None]
  - LIVE BIRTH [None]
  - MATERNAL DRUGS AFFECTING FOETUS [None]
  - MITRAL VALVE INCOMPETENCE [None]
  - MULTIPLE CONGENITAL ABNORMALITIES [None]
  - PREGNANCY [None]
  - SUPRAVENTRICULAR TACHYCARDIA [None]
  - TRICUSPID VALVE INCOMPETENCE [None]
  - WOLFF-PARKINSON-WHITE SYNDROME [None]
